FAERS Safety Report 9226209 (Version 3)
Quarter: 2013Q2

REPORT INFORMATION
  Report Type: Report from Study
  Country: ES (occurrence: ES)
  Receive Date: 20130411
  Receipt Date: 20130624
  Transmission Date: 20140414
  Serious: Yes (Hospitalization)
  Sender: FDA-Public Use
  Company Number: PHHO2012ES001700

PATIENT
  Age: 51 Year
  Sex: Male
  Weight: 91.7 kg

DRUGS (4)
  1. RIBAVIRIN [Suspect]
     Indication: LIVER TRANSPLANT
     Dosage: 800 MG, BID
     Route: 048
     Dates: start: 20110919, end: 20120106
  2. PROGRAF [Suspect]
     Indication: LIVER TRANSPLANT
     Dosage: 2 MG, BID
     Route: 048
     Dates: start: 20110722
  3. NO TREATMENT RECEIVED [Suspect]
     Indication: LIVER TRANSPLANT
  4. PEGINTERFERON ALFA-2A [Suspect]
     Indication: LIVER TRANSPLANT
     Dosage: 180 UG, QW
     Route: 058
     Dates: start: 20110926, end: 20120106

REACTIONS (3)
  - Gastroenteritis [Recovered/Resolved]
  - Metabolic acidosis [Recovered/Resolved]
  - Renal impairment [Recovered/Resolved]
